FAERS Safety Report 25424856 (Version 6)
Quarter: 2025Q3

REPORT INFORMATION
  Report Type: Report from Study
  Country: GB (occurrence: GB)
  Receive Date: 20250611
  Receipt Date: 20250812
  Transmission Date: 20251020
  Serious: Yes (Hospitalization, Other)
  Sender: EMD SERONO INC
  Company Number: GB-Merck Healthcare KGaA-2025029685

PATIENT
  Age: 86 Year
  Sex: Female
  Weight: 91 kg

DRUGS (15)
  1. LEVOTHYROXINE SODIUM [Suspect]
     Active Substance: LEVOTHYROXINE SODIUM
     Indication: Atrial fibrillation
     Dosage: DOSAGE TEXT: 50 MICROGRAM, ONCE A DAY; NUMBER OF SEPARATE DOSES:
  2. LEVOTHYROXINE SODIUM [Suspect]
     Active Substance: LEVOTHYROXINE SODIUM
     Indication: Cerebrovascular accident prophylaxis
     Dosage: DOSAGE TEXT: 1 DOSAGE FORM, ONCE A DAY; NUMBER OF SEPARATE DOSES:
  3. LEVOTHYROXINE SODIUM [Suspect]
     Active Substance: LEVOTHYROXINE SODIUM
  4. BISOPROLOL FUMARATE [Suspect]
     Active Substance: BISOPROLOL FUMARATE
     Indication: Cerebrovascular accident prophylaxis
     Dosage: DOSAGE TEXT: 10 MILLIGRAM, ONCE A DAY; NUMBER OF SEPARATE DOSES:
  5. LANSOPRAZOLE [Suspect]
     Active Substance: LANSOPRAZOLE
     Indication: Atrial fibrillation
     Dosage: DOSAGE TEXT: 30 MILLIGRAM, ONCE A DAY (MORNING); NUMBER OF SEPARATE DOSES:
  6. LANSOPRAZOLE [Suspect]
     Active Substance: LANSOPRAZOLE
     Indication: Cerebrovascular accident prophylaxis
  7. SIMVASTATIN [Suspect]
     Active Substance: SIMVASTATIN
     Indication: Product used for unknown indication
     Dosage: DOSAGE TEXT: 40 MILLIGRAM, DAILY (NIGHT); NUMBER OF SEPARATE DOSES:
  8. ISOSORBIDE MONONITRATE [Suspect]
     Active Substance: ISOSORBIDE MONONITRATE
     Indication: Coronary artery disease
  9. CANDESARTAN [Suspect]
     Active Substance: CANDESARTAN
     Indication: Cerebrovascular accident prophylaxis
     Dosage: DOSAGE TEXT: 2 MILLIGRAM, ONCE A DAY (MORNING); NUMBER OF SEPARATE DOSES:
  10. HYDROCHLOROTHIAZIDE [Suspect]
     Active Substance: HYDROCHLOROTHIAZIDE
     Indication: Cerebrovascular accident prophylaxis
     Dosage: DOSAGE TEXT: NUMBER OF SEPARATE DOSES:
  11. CETIRIZINE [Suspect]
     Active Substance: CETIRIZINE HYDROCHLORIDE
     Indication: Product used for unknown indication
     Dosage: DOSAGE TEXT: 10 MILLIGRAM, ONCE A DAY (MORNING); NUMBER OF SEPARATE DOSES:
  12. LINAGLIPTIN [Suspect]
     Active Substance: LINAGLIPTIN
     Indication: Product used for unknown indication
     Dosage: DOSAGE TEXT: 5 MILLIGRAM, ONCE A DAY; NUMBER OF SEPARATE DOSES:
  13. DIGOXIN [Suspect]
     Active Substance: DIGOXIN
     Indication: Cerebrovascular accident prophylaxis
     Dosage: DOSAGE TEXT: 62.5 MICROGRAM, ONCE A DAY; NUMBER OF SEPARATE DOSES:
  14. APIXABAN [Suspect]
     Active Substance: APIXABAN
     Indication: Atrial fibrillation
     Dosage: DOSAGE TEXT: 5 MILLIGRAM, ONCE A DAY 10 MG (1 DAY) NUMBER OF SEPARATE DOSES:
     Dates: end: 20180207
  15. APIXABAN [Suspect]
     Active Substance: APIXABAN
     Indication: Cerebrovascular accident prophylaxis

REACTIONS (2)
  - Subarachnoid haemorrhage [Recovered/Resolved with Sequelae]
  - Off label use [Unknown]
